FAERS Safety Report 19703607 (Version 6)
Quarter: 2022Q3

REPORT INFORMATION
  Report Type: Spontaneous
  Country: US (occurrence: US)
  Receive Date: 20210816
  Receipt Date: 20220913
  Transmission Date: 20221027
  Serious: Yes (Hospitalization, Other)
  Sender: FDA-Public Use
  Company Number: US-LUPIN PHARMACEUTICALS INC.-2021-14338

PATIENT
  Age: 72 Year
  Sex: Female
  Weight: 6235 kg

DRUGS (3)
  1. AMLODIPINE BESYLATE [Suspect]
     Active Substance: AMLODIPINE BESYLATE
     Indication: Blood pressure abnormal
     Dosage: 2.5 MG, BID (2.5 MG IN THE MORNING AND 2.5 MG AT NIGHT))
     Route: 048
     Dates: start: 2021
  2. AMLODIPINE BESYLATE [Suspect]
     Active Substance: AMLODIPINE BESYLATE
     Indication: Blood pressure abnormal
     Dosage: 5 MG, QD
     Route: 048
     Dates: start: 2021
  3. AMLODIPINE BESYLATE [Suspect]
     Active Substance: AMLODIPINE BESYLATE
     Dosage: 5 MG, QD
     Route: 048
     Dates: start: 2021

REACTIONS (5)
  - Cerebrovascular accident [Unknown]
  - Hypertension [Unknown]
  - Hypotension [Unknown]
  - Dehydration [Unknown]
  - Product prescribing issue [Unknown]
